FAERS Safety Report 14545995 (Version 4)
Quarter: 2018Q4

REPORT INFORMATION
  Report Type: Spontaneous
  Country: US (occurrence: US)
  Receive Date: 20180219
  Receipt Date: 20181203
  Transmission Date: 20190204
  Serious: No
  Sender: FDA-Public Use
  Company Number: US-LUPIN PHARMACEUTICALS INC.-2018-00284

PATIENT
  Sex: Male
  Weight: 20 kg

DRUGS (1)
  1. GAVILAX [Suspect]
     Active Substance: POLYETHYLENE GLYCOL 3350
     Indication: CONSTIPATION
     Dosage: UNKNOWN
     Route: 048

REACTIONS (3)
  - Dysgeusia [Unknown]
  - Product odour abnormal [Recovered/Resolved]
  - Infantile spitting up [None]
